FAERS Safety Report 8595944-3 (Version None)
Quarter: 2012Q3

REPORT INFORMATION
  Report Type: 
  Country: None (occurrence: None)
  Receive Date: 20120815
  Receipt Date: 20120806
  Transmission Date: 20120928
  Serious: No
  Sender: FDA-Public Use
  Company Number: US-ASTRAZENECA-2012SE55460

PATIENT
  Age: 27 Year
  Sex: Female
  Weight: 52.2 kg

DRUGS (3)
  1. SEROQUEL [Suspect]
     Indication: STRESS
     Route: 048
  2. PROZAC [Concomitant]
  3. SEROQUEL [Suspect]
     Indication: SLEEP DISORDER
     Route: 048

REACTIONS (3)
  - RESTLESS LEGS SYNDROME [None]
  - OFF LABEL USE [None]
  - MUSCLE SPASMS [None]
